FAERS Safety Report 16423251 (Version 1)
Quarter: 2019Q2

REPORT INFORMATION
  Report Type: Spontaneous
  Country: IT (occurrence: IT)
  Receive Date: 20190612
  Receipt Date: 20190612
  Transmission Date: 20190711
  Serious: Yes (Hospitalization, Other)
  Sender: FDA-Public Use
  Company Number: IT-ALLERGAN-1921078US

PATIENT
  Sex: Male

DRUGS (3)
  1. DORZOSTILL [Concomitant]
     Indication: GLAUCOMA
  2. OZURDEX [Suspect]
     Active Substance: DEXAMETHASONE
     Indication: CYSTOID MACULAR OEDEMA
     Dosage: 0.7 MG, SINGLE
     Route: 031
     Dates: start: 20190212, end: 20190212
  3. COSOPT [Concomitant]
     Active Substance: DORZOLAMIDE HYDROCHLORIDE\TIMOLOL MALEATE
     Indication: GLAUCOMA
     Dosage: 1 GTT, BID

REACTIONS (6)
  - Anterior chamber flare [Recovered/Resolved]
  - Off label use [Unknown]
  - Pulmonary embolism [Unknown]
  - Eye haemorrhage [Recovered/Resolved]
  - Intraocular pressure increased [Recovered/Resolved]
  - Device dislocation [Unknown]

NARRATIVE: CASE EVENT DATE: 20190215
